FAERS Safety Report 6675475-8 (Version None)
Quarter: 2010Q2

REPORT INFORMATION
  Report Type: 
  Country: None (occurrence: None)
  Receive Date: 20100409
  Receipt Date: 20100407
  Transmission Date: 20101027
  Serious: Yes (Life-Threatening, Hospitalization)
  Sender: FDA-Public Use
  Company Number: A0854227A

PATIENT
  Age: 64 Year
  Sex: Female
  Weight: 125 kg

DRUGS (8)
  1. AVANDAMET [Suspect]
  2. TRIAMTERENE AND HYDROCHLOROTHIAZIDE [Suspect]
     Dosage: 25MG PER DAY
  3. EXEMESTANE [Suspect]
     Indication: BREAST CANCER
     Dosage: 25MG PER DAY
     Dates: start: 20060101
  4. METOPROLOL TARTRATE [Suspect]
     Dosage: 25MG TWICE PER DAY
  5. ZOCOR [Suspect]
     Dosage: 20MG PER DAY
  6. FOSAMAX [Suspect]
     Dosage: 70MG WEEKLY
  7. LISINOPRIL [Suspect]
     Dosage: 10MG PER DAY
  8. CALCIUM WITH VITAMIN D [Concomitant]

REACTIONS (2)
  - DYSPNOEA [None]
  - PULMONARY EMBOLISM [None]
